FAERS Safety Report 18375044 (Version 3)
Quarter: 2020Q4

REPORT INFORMATION
  Report Type: Report from Study
  Country: NL (occurrence: NL)
  Receive Date: 20201013
  Receipt Date: 20201111
  Transmission Date: 20210114
  Serious: Yes (Hospitalization)
  Sender: FDA-Public Use
  Company Number: NL-ROCHE-2691602

PATIENT
  Age: 58 Year
  Sex: Female

DRUGS (7)
  1. PERTUZUMAB. [Suspect]
     Active Substance: PERTUZUMAB
     Indication: ADENOCARCINOMA METASTATIC
     Route: 042
     Dates: start: 20200930
  2. FENTANYL. [Concomitant]
     Active Substance: FENTANYL
  3. LIDOCAINE. [Concomitant]
     Active Substance: LIDOCAINE
     Dosage: 30MG/G
     Dates: start: 20200922
  4. TRASTUZUMAB. [Suspect]
     Active Substance: TRASTUZUMAB
     Indication: ADENOCARCINOMA METASTATIC
     Route: 041
     Dates: start: 20200930
  5. OMEPRAZOLE. [Concomitant]
     Active Substance: OMEPRAZOLE
     Dates: start: 20200910
  6. OXYCODON [Concomitant]
     Active Substance: OXYCODONE
     Dates: start: 20190910
  7. FENTANYL. [Concomitant]
     Active Substance: FENTANYL
     Dates: start: 20201002

REACTIONS (1)
  - Malaise [Recovered/Resolved]

NARRATIVE: CASE EVENT DATE: 20201002
